FAERS Safety Report 12640123 (Version 1)
Quarter: 2016Q3

REPORT INFORMATION
  Report Type: Spontaneous
  Country: US (occurrence: US)
  Receive Date: 20160810
  Receipt Date: 20160810
  Transmission Date: 20161109
  Serious: Yes (Hospitalization, Other)
  Sender: FDA-Public Use
  Company Number: US-ALEXION PHARMACEUTICALS INC-A201605627

PATIENT
  Sex: Female

DRUGS (1)
  1. SOLIRIS [Suspect]
     Active Substance: ECULIZUMAB
     Indication: HAEMOLYTIC URAEMIC SYNDROME
     Route: 042

REACTIONS (6)
  - Oedema peripheral [Unknown]
  - Dyspnoea [Unknown]
  - Weight increased [Unknown]
  - Panic attack [Unknown]
  - Ascites [Unknown]
  - Swelling [Unknown]

NARRATIVE: CASE EVENT DATE: 201607
